FAERS Safety Report 8518425-1 (Version None)
Quarter: 2012Q3

REPORT INFORMATION
  Report Type: 
  Country: None (occurrence: None)
  Receive Date: 20120718
  Receipt Date: 20120321
  Transmission Date: 20120928
  Serious: No
  Sender: FDA-Public Use
  Company Number: US-BRISTOL-MYERS SQUIBB COMPANY-16413023

PATIENT
  Age: 72 Year
  Sex: Female
  Weight: 78 kg

DRUGS (2)
  1. COUMADIN [Suspect]
     Indication: ATRIAL FIBRILLATION
     Dosage: PRESCRIPTION #: 7711398,1MG,DOSE INCREASED TO 11MG,THEN DROPPING BACK TO 7.5-8MG
  2. ASPIRIN [Suspect]

REACTIONS (2)
  - VITAMIN D DECREASED [None]
  - INTERNATIONAL NORMALISED RATIO FLUCTUATION [None]
